FAERS Safety Report 9311467 (Version 1)
Quarter: 2012Q4

REPORT INFORMATION
  Report Type: Spontaneous
  Country: US (occurrence: None)
  Receive Date: 20121212
  Receipt Date: 20121212
  Transmission Date: 20130627
  Serious: Yes (Other)
  Sender: FDA-Public Use
  Company Number: VAL_01172_2012

PATIENT
  Sex: Female

DRUGS (2)
  1. METOPROLOL [Suspect]
     Indication: PRODUCT USED FOR UNKNOWN INDICATION
  2. DIOVAN (NOT SPECIFIED) [Suspect]
     Indication: PRODUCT USED FOR UNKNOWN INDICATION
     Dosage: (160 mg, once daily in the morning)

REACTIONS (7)
  - Memory impairment [None]
  - Cardiac disorder [None]
  - Aneurysm [None]
  - Malaise [None]
  - Thinking abnormal [None]
  - Loss of employment [None]
  - Stress [None]
